FAERS Safety Report 6069538-8 (Version None)
Quarter: 2009Q1

REPORT INFORMATION
  Report Type: 
  Country: None (occurrence: None)
  Receive Date: 20090206
  Receipt Date: 20090130
  Transmission Date: 20090719
  Serious: Yes (Hospitalization)
  Sender: FDA-Public Use
  Company Number: JP-B.I. PHARMACEUTICALS,INC./RIDGEFIELD-2008-BP-03488NB

PATIENT
  Sex: Female
  Weight: 37.8 kg

DRUGS (10)
  1. BI-SIFROL TABLETS [Suspect]
     Indication: PARKINSON'S DISEASE
     Dosage: 1.5MG
     Route: 048
     Dates: start: 20051226
  2. SELEGILINE HYDROCHLORIDE [Suspect]
     Indication: PARKINSON'S DISEASE
     Dosage: 7.5MG
     Route: 048
     Dates: start: 20070101
  3. SYMMETREL [Concomitant]
     Indication: PARKINSON'S DISEASE
     Dosage: 200MG
     Route: 048
     Dates: start: 20031126
  4. LEXOTAN [Concomitant]
     Indication: DEPRESSION
     Dosage: 3MG
     Route: 048
     Dates: start: 20031126
  5. DOMPERIDONE [Concomitant]
     Indication: PARKINSON'S DISEASE
     Dosage: 3MG
     Route: 048
     Dates: start: 20031126
  6. ASPIRIN [Concomitant]
     Indication: CEREBRAL INFARCTION
     Dosage: 100MG
     Route: 048
     Dates: start: 20031126
  7. BROTIZOLAM [Concomitant]
     Indication: INSOMNIA
     Dosage: .25MG
     Route: 048
     Dates: start: 20031126
  8. ARTANE [Concomitant]
     Indication: PARKINSON'S DISEASE
     Dosage: 2MG
     Route: 048
     Dates: start: 20031215
  9. CARBIDOPA + LEVODOPA [Concomitant]
     Indication: PARKINSON'S DISEASE
     Dosage: 350MG
     Route: 048
     Dates: start: 20031126
  10. DIOVAN [Concomitant]
     Indication: HYPERTENSION
     Dosage: 80MG
     Route: 048
     Dates: start: 20040416

REACTIONS (6)
  - ATRIAL SEPTAL DEFECT [None]
  - CARDIAC FAILURE [None]
  - CONGESTIVE CARDIOMYOPATHY [None]
  - MITRAL VALVE INCOMPETENCE [None]
  - RESPIRATORY FAILURE [None]
  - TRICUSPID VALVE INCOMPETENCE [None]
